FAERS Safety Report 9268908 (Version 1)
Quarter: 2013Q2

REPORT INFORMATION
  Report Type: Spontaneous
  Country: BR (occurrence: BR)
  Receive Date: 20130503
  Receipt Date: 20130503
  Transmission Date: 20140414
  Serious: Yes (Other)
  Sender: FDA-Public Use
  Company Number: BR-AMGEN-BRASP2013030397

PATIENT
  Age: 26 Year
  Sex: Female
  Weight: 78 kg

DRUGS (10)
  1. ENBREL [Suspect]
     Indication: RHEUMATOID ARTHRITIS
     Dosage: 50 MG, ONCE WEEKLY
     Route: 058
     Dates: start: 20121024
  2. METHOTREXATE [Concomitant]
     Indication: ARTHRITIS
     Dosage: STRENGTH 2.5MG
  3. PREDNISONE [Concomitant]
     Indication: RHEUMATOID ARTHRITIS
     Dosage: STRENGTH 5MG
  4. SIMVASTATIN [Concomitant]
     Indication: BLOOD CHOLESTEROL ABNORMAL
     Dosage: STRENGTH 20MG
  5. FOLIC ACID [Concomitant]
     Dosage: STRENGTH 5MG
  6. HYDROCHLOROTHIAZIDE [Concomitant]
     Indication: HYPERTENSION
     Dosage: STRENGTH 25MG
  7. ENALAPRIL [Concomitant]
     Indication: HYPERTENSION
     Dosage: STRENGTH 5MG
  8. ALENDIL [Concomitant]
     Dosage: STRENGTH 500MG
  9. ARAVA [Concomitant]
     Indication: RHEUMATOID ARTHRITIS
     Dosage: STRENGTH 20MG, 1 CAPSULE OR TABLET, NOT CLEARLY SPECIFIED (20 MG), 1X/DAY
  10. OMEPRAZOLE [Concomitant]
     Indication: GASTRIC DISORDER
     Dosage: STRENGTH 20MG

REACTIONS (2)
  - Back pain [Not Recovered/Not Resolved]
  - Pneumonia [Not Recovered/Not Resolved]
